FAERS Safety Report 6404223-1 (Version None)
Quarter: 2009Q4

REPORT INFORMATION
  Report Type: 
  Country: None (occurrence: None)
  Receive Date: 20091013
  Receipt Date: 20090929
  Transmission Date: 20100525
  Serious: Yes (Death, Hospitalization)
  Sender: FDA-Public Use
  Company Number: PAR_03196_2009

PATIENT
  Age: 75 Year
  Sex: Female

DRUGS (1)
  1. CARBERGOLINE [Suspect]
     Indication: PARKINSON'S DISEASE
     Dosage: 4 MG, DF

REACTIONS (7)
  - AORTIC VALVE INCOMPETENCE [None]
  - CARDIAC ARREST [None]
  - CARDIOGENIC SHOCK [None]
  - CHEST PAIN [None]
  - GENERAL PHYSICAL HEALTH DETERIORATION [None]
  - HYPOTENSION [None]
  - MITRAL VALVE INCOMPETENCE [None]
